FAERS Safety Report 22276200 (Version 4)
Quarter: 2023Q2

REPORT INFORMATION
  Report Type: Report from Study
  Country: GR (occurrence: GR)
  Receive Date: 20230502
  Receipt Date: 20230622
  Transmission Date: 20230722
  Serious: Yes (Death, Life-Threatening, Other)
  Sender: FDA-Public Use
  Company Number: GR-ABBVIE-4707822

PATIENT
  Age: 74 Year
  Sex: Female
  Weight: 84 kg

DRUGS (6)
  1. VENETOCLAX [Suspect]
     Active Substance: VENETOCLAX
     Indication: Acute myeloid leukaemia
     Route: 048
     Dates: start: 20200316, end: 20200505
  2. VENETOCLAX [Suspect]
     Active Substance: VENETOCLAX
     Indication: Acute myeloid leukaemia
     Route: 048
     Dates: start: 20191205, end: 20191215
  3. VALACYCLOVIR [Concomitant]
     Active Substance: VALACYCLOVIR HYDROCHLORIDE
     Indication: Antibiotic prophylaxis
     Dosage: FREQUENCY TEXT: TWICE?UNIT DOSE: 500 OF UNSPECIFIED UNITS
     Route: 048
     Dates: start: 20161220, end: 20201128
  4. FLUCONAZOLE [Concomitant]
     Active Substance: FLUCONAZOLE
     Indication: Antibiotic prophylaxis
     Dosage: UNIT DOSE: 200 OF UNSPECIFIED UNITS
     Route: 048
     Dates: start: 20161220, end: 20201128
  5. CIPROFLOXACIN [Concomitant]
     Active Substance: CIPROFLOXACIN
     Indication: Antibiotic prophylaxis
     Dosage: UNIT DOSE: 500 OF UNSPECIFIED UNITS?FREQUENCY TEXT: TWICE
     Route: 048
     Dates: start: 20161220, end: 20201128
  6. ALLOPURINOL [Concomitant]
     Active Substance: ALLOPURINOL
     Indication: Hyperuricaemia
     Dosage: UNIT DOSE: 300 OF UNSPECIFIED UNITS?FREQUENCY TEXT: ONCE
     Route: 048
     Dates: start: 20161220, end: 20201128

REACTIONS (4)
  - Acute respiratory failure [Fatal]
  - Thrombocytopenia [Recovered/Resolved]
  - Septic shock [Not Recovered/Not Resolved]
  - Enterococcus test positive [Not Recovered/Not Resolved]

NARRATIVE: CASE EVENT DATE: 20200316
